FAERS Safety Report 22653390 (Version 2)
Quarter: 2023Q4

REPORT INFORMATION
  Report Type: Other
  Country: CA (occurrence: CA)
  Receive Date: 20230629
  Receipt Date: 20231212
  Transmission Date: 20240109
  Serious: Yes (Hospitalization, Other)
  Sender: FDA-Public Use
  Company Number: CA-APOTEX-2023AP009338

PATIENT
  Age: 40 Year
  Sex: Male

DRUGS (47)
  1. CITALOPRAM [Suspect]
     Active Substance: CITALOPRAM HYDROBROMIDE
     Indication: Schizophrenia
     Dosage: 80 MILLIGRAM
     Route: 065
  2. CLOMIPRAMINE [Suspect]
     Active Substance: CLOMIPRAMINE
     Indication: Schizophrenia
     Dosage: 250 MILLIGRAM
     Route: 065
  3. CLOZAPINE [Suspect]
     Active Substance: CLOZAPINE
     Indication: Schizophrenia
     Dosage: 350 MILLIGRAM
     Route: 065
  4. GABAPENTIN [Suspect]
     Active Substance: GABAPENTIN
     Indication: Schizophrenia
     Dosage: 1800 MILLIGRAM
     Route: 065
  5. GABAPENTIN [Suspect]
     Active Substance: GABAPENTIN
     Dosage: 600 MILLIGRAM
     Route: 065
  6. GABAPENTIN [Suspect]
     Active Substance: GABAPENTIN
     Dosage: 1600 MILLIGRAM
     Route: 065
  7. HALOPERIDOL [Suspect]
     Active Substance: HALOPERIDOL
     Indication: Product used for unknown indication
     Dosage: 5 MILLIGRAM
     Route: 065
  8. HALOPERIDOL [Suspect]
     Active Substance: HALOPERIDOL
     Dosage: 6 MILLIGRAM
     Route: 065
  9. LITHIUM [Suspect]
     Active Substance: LITHIUM
     Indication: Schizophrenia
     Dosage: 2400 MILLIGRAM
     Route: 065
  10. LITHIUM [Suspect]
     Active Substance: LITHIUM
     Dosage: 1050 MILLIGRAM
     Route: 065
  11. LITHIUM [Suspect]
     Active Substance: LITHIUM
     Dosage: 1800 MILLIGRAM
     Route: 065
  12. LITHIUM [Suspect]
     Active Substance: LITHIUM
     Dosage: UNK
     Route: 065
  13. LOXAPINE [Suspect]
     Active Substance: LOXAPINE
     Indication: Schizophrenia
     Dosage: 50 MILLIGRAM
     Route: 065
  14. LOXAPINE [Suspect]
     Active Substance: LOXAPINE
     Dosage: 75 MILLIGRAM
     Route: 065
  15. LOXAPINE [Suspect]
     Active Substance: LOXAPINE
     Dosage: 200 MILLIGRAM
     Route: 065
  16. LOXAPINE [Suspect]
     Active Substance: LOXAPINE
     Dosage: 50 MILLIGRAM
     Route: 048
  17. FLUOXETINE [Suspect]
     Active Substance: FLUOXETINE HYDROCHLORIDE
     Indication: Schizophrenia
     Dosage: 80 MILLIGRAM
     Route: 065
  18. PERPHENAZINE [Suspect]
     Active Substance: PERPHENAZINE
     Indication: Schizophrenia
     Dosage: 32 MILLIGRAM
     Route: 065
  19. PERPHENAZINE [Suspect]
     Active Substance: PERPHENAZINE
     Dosage: UNK
     Route: 065
  20. QUETIAPINE [Suspect]
     Active Substance: QUETIAPINE
     Indication: Schizophrenia
     Dosage: 600 MILLIGRAM
     Route: 065
  21. TRIFLUOPERAZINE [Suspect]
     Active Substance: TRIFLUOPERAZINE HYDROCHLORIDE
     Indication: Schizophrenia
     Dosage: 50 MILLIGRAM
     Route: 065
  22. TRIFLUOPERAZINE [Suspect]
     Active Substance: TRIFLUOPERAZINE HYDROCHLORIDE
     Dosage: 5 MILLIGRAM
     Route: 065
  23. RISPERIDONE [Suspect]
     Active Substance: RISPERIDONE
     Indication: Schizophrenia
     Dosage: 3 MILLIGRAM
     Route: 065
  24. RISPERIDONE [Suspect]
     Active Substance: RISPERIDONE
     Dosage: 8 MILLIGRAM
     Route: 065
  25. RISPERIDONE [Suspect]
     Active Substance: RISPERIDONE
     Dosage: 4 MILLIGRAM
     Route: 065
  26. OLANZAPINE [Suspect]
     Active Substance: OLANZAPINE
     Indication: Schizophrenia
     Dosage: 20 MILLIGRAM
     Route: 065
  27. OLANZAPINE [Suspect]
     Active Substance: OLANZAPINE
     Dosage: 40 MILLIGRAM
     Route: 065
  28. OLANZAPINE [Suspect]
     Active Substance: OLANZAPINE
     Dosage: 15 MILLIGRAM
     Route: 065
  29. DIVALPROEX SODIUM [Suspect]
     Active Substance: DIVALPROEX SODIUM
     Indication: Schizophrenia
     Dosage: 1000 MILLIGRAM
     Route: 065
  30. DIVALPROEX SODIUM [Suspect]
     Active Substance: DIVALPROEX SODIUM
     Dosage: 1250 MILLIGRAM
     Route: 065
  31. DIVALPROEX SODIUM [Suspect]
     Active Substance: DIVALPROEX SODIUM
     Dosage: 100 MILLIGRAM
     Route: 065
  32. DIVALPROEX SODIUM [Suspect]
     Active Substance: DIVALPROEX SODIUM
     Dosage: 1200 MILLIGRAM
     Route: 065
  33. ABILIFY [Suspect]
     Active Substance: ARIPIPRAZOLE
     Indication: Schizophrenia
     Dosage: 30 MILLIGRAM
     Route: 048
  34. AMISULPRIDE [Suspect]
     Active Substance: AMISULPRIDE
     Indication: Schizophrenia
     Dosage: 1200 MILLIGRAM
     Route: 065
  35. ASENAPINE MALEATE [Suspect]
     Active Substance: ASENAPINE MALEATE
     Indication: Schizophrenia
     Dosage: UNK
     Route: 065
  36. FLUPENTIXOL [Suspect]
     Active Substance: FLUPENTIXOL
     Indication: Schizophrenia
     Dosage: 6 MILLIGRAM
     Route: 065
  37. FLUPENTIXOL [Suspect]
     Active Substance: FLUPENTIXOL
     Dosage: 60 MILLIGRAM
     Route: 065
  38. HALOPERIDOL DECANOATE [Suspect]
     Active Substance: HALOPERIDOL DECANOATE
     Indication: Schizophrenia
     Dosage: 5 MILLIGRAM
     Route: 030
  39. ZIPRASIDONE [Suspect]
     Active Substance: ZIPRASIDONE
     Indication: Schizophrenia
     Dosage: 15 MILLIGRAM
     Route: 065
  40. OLANZAPINE [Suspect]
     Active Substance: OLANZAPINE
     Dosage: 40 MILLIGRAM
     Route: 065
  41. ZIPRASIDONE [Suspect]
     Active Substance: ZIPRASIDONE
     Dosage: 100 MILLIGRAM
     Route: 065
  42. SAPHRIS [Suspect]
     Active Substance: ASENAPINE MALEATE
     Indication: Schizophrenia
     Dosage: 100 MILLIGRAM
     Route: 065
  43. THIORIDAZINE [Suspect]
     Active Substance: THIORIDAZINE
     Indication: Schizophrenia
     Dosage: UNK
     Route: 048
  44. ZIPRASIDONE HYDROCHLORIDE [Suspect]
     Active Substance: ZIPRASIDONE HYDROCHLORIDE
     Indication: Schizophrenia
     Dosage: 100 MILLIGRAM
     Route: 065
  45. ZIPRASIDONE HYDROCHLORIDE [Suspect]
     Active Substance: ZIPRASIDONE HYDROCHLORIDE
     Dosage: 100 MILLIGRAM
     Route: 048
  46. PROZAC [Suspect]
     Active Substance: FLUOXETINE HYDROCHLORIDE
     Indication: Schizophrenia
     Dosage: 80 MILLIGRAM
     Route: 065
  47. OLANZAPINE [Suspect]
     Active Substance: OLANZAPINE

REACTIONS (19)
  - Antipsychotic drug level below therapeutic [Unknown]
  - Disinhibition [Unknown]
  - Dyslipidaemia [Unknown]
  - Irritability [Unknown]
  - Leukopenia [Unknown]
  - Obsessive-compulsive disorder [Unknown]
  - Toxicity to various agents [Unknown]
  - Prescribed overdose [Unknown]
  - Leukaemia [Unknown]
  - Euphoric mood [Unknown]
  - Increased appetite [Unknown]
  - Obesity [Unknown]
  - Suicide attempt [Unknown]
  - Weight increased [Unknown]
  - Akathisia [Unknown]
  - Hypertension [Unknown]
  - Drug ineffective [Unknown]
  - Therapeutic product effect incomplete [Unknown]
  - Therapeutic product effect variable [Unknown]
